FAERS Safety Report 10245116 (Version 1)
Quarter: 2014Q2

REPORT INFORMATION
  Report Type: Spontaneous
  Country: US (occurrence: US)
  Receive Date: 20140618
  Receipt Date: 20140618
  Transmission Date: 20141212
  Serious: Yes (Hospitalization, Other)
  Sender: FDA-Public Use
  Company Number: US-PFIZER INC-2014163425

PATIENT
  Age: 60 Year
  Sex: Male
  Weight: 90.7 kg

DRUGS (2)
  1. LYRICA [Suspect]
     Indication: PAIN IN EXTREMITY
     Dosage: 150 MG (BY TAKING 2 CAPSULES OF 75MG TOGETHER), 2X/DAY
     Route: 048
     Dates: start: 2012, end: 201309
  2. LYRICA [Suspect]
     Indication: PAIN IN EXTREMITY
     Dosage: 150 MG (BY TAKING 2 CAPSULES OF 75MG TOGETHER), 3X/DAY
     Route: 048
     Dates: start: 201312, end: 20140611

REACTIONS (10)
  - Burning sensation [Recovered/Resolved]
  - Pain [Recovered/Resolved]
  - Peripheral swelling [Recovered/Resolved]
  - Skin discolouration [Unknown]
  - Musculoskeletal discomfort [Unknown]
  - Renal failure [Unknown]
  - Road traffic accident [Unknown]
  - Head injury [Unknown]
  - Neck injury [Unknown]
  - Peripheral swelling [Recovered/Resolved]
